FAERS Safety Report 5752421-2 (Version None)
Quarter: 2008Q2

REPORT INFORMATION
  Report Type: 
  Country: None (occurrence: None)
  Receive Date: 20080529
  Receipt Date: 20080527
  Transmission Date: 20081010
  Serious: Yes (Other)
  Sender: FDA-Public Use
  Company Number: B0516196A

PATIENT
  Age: 75 Year
  Sex: Female

DRUGS (10)
  1. ZANTAC [Suspect]
     Indication: GASTRITIS
     Dosage: 150MG PER DAY
     Route: 048
     Dates: start: 20071201
  2. PROPIVERINE HYDROCHLORIDE [Concomitant]
     Dosage: 10MG PER DAY
     Route: 048
     Dates: start: 20080322
  3. HYPEN [Concomitant]
     Dosage: 400MG PER DAY
     Route: 048
     Dates: start: 20071201
  4. MUCOSTA [Concomitant]
     Dosage: 200MG PER DAY
     Route: 048
     Dates: start: 20071201
  5. EMPYNASE P [Concomitant]
     Route: 048
     Dates: start: 20071201
  6. NORVASC [Concomitant]
     Dosage: 5MG PER DAY
     Route: 048
     Dates: start: 20071201
  7. BLOPRESS [Concomitant]
     Dosage: 8MG PER DAY
     Route: 048
     Dates: start: 20071201
  8. HORIZON [Concomitant]
     Dosage: 2MG PER DAY
     Route: 048
     Dates: start: 20071201
  9. CLARITIN [Concomitant]
     Dosage: 10MG PER DAY
     Route: 048
     Dates: start: 20071201
  10. PL [Concomitant]
     Route: 048
     Dates: start: 20071201

REACTIONS (5)
  - ANTINUCLEAR ANTIBODY INCREASED [None]
  - HENOCH-SCHONLEIN PURPURA [None]
  - NEPHRITIS [None]
  - STREPTOCOCCAL IDENTIFICATION TEST [None]
  - STREPTOCOCCAL INFECTION [None]
